FAERS Safety Report 6750515-6 (Version None)
Quarter: 2010Q2

REPORT INFORMATION
  Report Type: 
  Country: None (occurrence: None)
  Receive Date: 20100528
  Receipt Date: 20100528
  Transmission Date: 20101027
  Serious: No
  Sender: FDA-Public Use
  Company Number: None

PATIENT
  Sex: Male
  Weight: 73 kg

DRUGS (2)
  1. DAPTOMYCIN [Suspect]
     Indication: ENDOCARDITIS STAPHYLOCOCCAL
     Dosage: 400 MG DAILY IV
     Route: 042
     Dates: start: 20100215, end: 20100322
  2. NS 100 ML BAG [Suspect]

REACTIONS (1)
  - DEAFNESS [None]
